FAERS Safety Report 26124938 (Version 1)
Quarter: 2025Q4

REPORT INFORMATION
  Report Type: Spontaneous
  Country: US (occurrence: US)
  Receive Date: 20251205
  Receipt Date: 20251205
  Transmission Date: 20260117
  Serious: No
  Sender: SANOFI AVENTIS
  Company Number: US-SA-2025SA363233

PATIENT
  Sex: Male

DRUGS (2)
  1. DUPIXENT [Suspect]
     Active Substance: DUPILUMAB
     Indication: Dermatitis atopic
     Dosage: 300 MG, QOW
     Route: 058
     Dates: start: 201910
  2. WEGOVY [Suspect]
     Active Substance: SEMAGLUTIDE
     Indication: Gastrointestinal disorder

REACTIONS (4)
  - Gastrointestinal disorder [Unknown]
  - Flatulence [Unknown]
  - Diarrhoea [Unknown]
  - Dermatitis atopic [Unknown]
